FAERS Safety Report 15843488 (Version 2)
Quarter: 2019Q1

REPORT INFORMATION
  Report Type: Spontaneous
  Country: US (occurrence: US)
  Receive Date: 20190118
  Receipt Date: 20190220
  Transmission Date: 20190417
  Serious: Yes (Other)
  Sender: FDA-Public Use
  Company Number: US-BAYER-2019-013664

PATIENT
  Age: 52 Year
  Sex: Female
  Weight: 77.1 kg

DRUGS (1)
  1. BAYER LOW DOSE [Suspect]
     Active Substance: ASPIRIN
     Dosage: UNK
     Dates: start: 201511

REACTIONS (13)
  - Pulmonary pain [None]
  - Nausea [None]
  - Rash [None]
  - Oropharyngeal pain [None]
  - Oropharyngeal oedema [None]
  - Productive cough [None]
  - Anaphylactic reaction [Unknown]
  - Respiratory distress [None]
  - Chills [None]
  - Drug hypersensitivity [Unknown]
  - Erythema [None]
  - Dyspnoea [None]
  - Asthenia [None]

NARRATIVE: CASE EVENT DATE: 201511
